FAERS Safety Report 6337532-5 (Version None)
Quarter: 2009Q3

REPORT INFORMATION
  Report Type: 
  Country: None (occurrence: None)
  Receive Date: 20090902
  Receipt Date: 20090825
  Transmission Date: 20100115
  Serious: Yes (Hospitalization, Other)
  Sender: FDA-Public Use
  Company Number: CA-AMGEN-QUU361725

PATIENT
  Age: 5 Year
  Sex: Female
  Weight: 16 kg

DRUGS (7)
  1. ENBREL [Suspect]
     Indication: DRUG USE FOR UNKNOWN INDICATION
     Route: 058
  2. CALCIUM [Concomitant]
  3. FOLIC ACID [Concomitant]
     Route: 048
  4. METHOTREXATE [Concomitant]
     Route: 048
  5. MULTI-VITAMINS [Concomitant]
  6. VITAMIN D [Concomitant]
  7. ZITHROMAX [Concomitant]

REACTIONS (10)
  - ARTHRALGIA [None]
  - C-REACTIVE PROTEIN INCREASED [None]
  - HAEMOGLOBIN DECREASED [None]
  - JOINT SWELLING [None]
  - NEUTROPHIL COUNT INCREASED [None]
  - OTITIS MEDIA [None]
  - PYREXIA [None]
  - RED BLOOD CELL SEDIMENTATION RATE INCREASED [None]
  - STREPTOBACILLUS INFECTION [None]
  - UPPER RESPIRATORY TRACT INFECTION [None]
